FAERS Safety Report 7389626-3 (Version None)
Quarter: 2011Q2

REPORT INFORMATION
  Report Type: 
  Country: None (occurrence: None)
  Receive Date: 20110401
  Receipt Date: 20110322
  Transmission Date: 20111010
  Serious: No
  Sender: FDA-Public Use
  Company Number: B0708282A

PATIENT
  Age: 10 Year

DRUGS (1)
  1. RELENZA [Suspect]
     Dosage: 6IUAX PER DAY
     Route: 055

REACTIONS (2)
  - OVERDOSE [None]
  - NO ADVERSE EVENT [None]
